FAERS Safety Report 5132670-7 (Version None)
Quarter: 2006Q4

REPORT INFORMATION
  Report Type: 
  Country: None (occurrence: None)
  Receive Date: 20061023
  Receipt Date: 20050621
  Transmission Date: 20070319
  Serious: Yes (Hospitalization)
  Sender: FDA-Public Use
  Company Number: PHHO2005FR09823

PATIENT
  Age: 58 Year
  Sex: Female

DRUGS (2)
  1. NEORAL [Suspect]
     Indication: LIVER TRANSPLANT
     Dosage: 200 MG/DAILY
     Route: 048
     Dates: start: 20041207
  2. CELLCEPT [Concomitant]
     Dates: start: 20050513

REACTIONS (3)
  - CHOLESTASIS [None]
  - DRUG INEFFECTIVE [None]
  - LIVER TRANSPLANT REJECTION [None]
